FAERS Safety Report 14826165 (Version 1)
Quarter: 2018Q2

REPORT INFORMATION
  Report Type: Spontaneous
  Country: NO (occurrence: NO)
  Receive Date: 20180430
  Receipt Date: 20180430
  Transmission Date: 20180711
  Serious: Yes (Hospitalization)
  Sender: FDA-Public Use
  Company Number: NO-ORION CORPORATION ORION PHARMA-18_00003465

PATIENT
  Age: 73 Year
  Sex: Male
  Weight: 62 kg

DRUGS (6)
  1. LEVAXIN [Concomitant]
     Active Substance: LEVOTHYROXINE SODIUM
     Indication: HYPOMETABOLISM
     Dosage: STRENGTH: 75 UG
     Route: 065
  2. LITHIONIT [Concomitant]
     Active Substance: LITHIUM SULFATE
     Indication: BIPOLAR DISORDER
     Route: 048
     Dates: start: 2000
  3. MADOPAR DEPOT [Concomitant]
     Active Substance: BENSERAZIDE HYDROCHLORIDE\LEVODOPA
     Indication: PARKINSON^S DISEASE
     Dosage: STRENGTH: 25/100 MG
     Route: 048
  4. LEVAXIN [Concomitant]
     Active Substance: LEVOTHYROXINE SODIUM
     Dosage: STRENGTH: 50 UG
     Route: 048
  5. STALEVO [Suspect]
     Active Substance: CARBIDOPA\ENTACAPONE\LEVODOPA
     Indication: PARKINSON^S DISEASE
     Route: 048
     Dates: start: 20180205
  6. SINEMET [Concomitant]
     Active Substance: CARBIDOPA\LEVODOPA
     Indication: PARKINSON^S DISEASE
     Dosage: STRENGTH: 25/100 MG
     Route: 048
     Dates: start: 201402

REACTIONS (4)
  - Dry mouth [Recovering/Resolving]
  - Wrong technique in product usage process [Recovering/Resolving]
  - Poor quality sleep [Recovering/Resolving]
  - Confusional state [Recovering/Resolving]

NARRATIVE: CASE EVENT DATE: 20180205
